FAERS Safety Report 15340966 (Version 1)
Quarter: 2018Q3

REPORT INFORMATION
  Report Type: Spontaneous
  Country: US (occurrence: US)
  Receive Date: 20180831
  Receipt Date: 20180831
  Transmission Date: 20181010
  Serious: No
  Sender: FDA-Public Use
  Company Number: US-SA-2018SA243114

PATIENT
  Sex: Female

DRUGS (1)
  1. GAVISCON [Suspect]
     Active Substance: ALUMINUM HYDROXIDE\MAGNESIUM CARBONATE
     Dosage: UNK

REACTIONS (1)
  - Drug dose omission [Unknown]
